FAERS Safety Report 25544619 (Version 2)
Quarter: 2025Q3

REPORT INFORMATION
  Report Type: Spontaneous
  Country: US (occurrence: US)
  Receive Date: 20250711
  Receipt Date: 20250724
  Transmission Date: 20251020
  Serious: No
  Sender: FRESENIUS KABI
  Company Number: US-FreseniusKabi-FK202509390

PATIENT
  Age: 33 Year
  Sex: Female

DRUGS (5)
  1. NAROPIN [Suspect]
     Active Substance: ROPIVACAINE HYDROCHLORIDE
     Indication: Nerve block
     Dates: start: 20250616
  2. albuterol (Eqv-ProAir HFA) [Concomitant]
     Indication: Product used for unknown indication
     Dosage: 90 MCG/INH INHALATION AEROSOL 1 PUFF, PRN, INHALATION, 4 TIMES DAILY
     Route: 055
  3. HYDROCODONE BITARTRATE AND ACETAMINOPHEN [Concomitant]
     Active Substance: ACETAMINOPHEN\HYDROCODONE BITARTRATE
     Indication: Product used for unknown indication
     Dosage: 10 MG-325 MG ORAL TABLET 1 TABLET, ORALLY, Q6H
     Route: 048
  4. HYOSCYAMINE [Concomitant]
     Active Substance: HYOSCYAMINE
     Indication: Product used for unknown indication
     Dosage: 0.375 MG ORAL TABLET, EXTENDED RELEASE 0.375 MG, ORALLY, Q12H
     Route: 048
  5. ONDANSETRON [Concomitant]
     Active Substance: ONDANSETRON
     Indication: Product used for unknown indication
     Dosage: 4 MG ORAL TABLET 4 MG = 1 TABLET, ORALLY, Q8H
     Route: 048

REACTIONS (1)
  - Drug ineffective [Unknown]

NARRATIVE: CASE EVENT DATE: 20250616
